FAERS Safety Report 6470558-X (Version None)
Quarter: 2009Q4

REPORT INFORMATION
  Report Type: 
  Country: None (occurrence: None)
  Receive Date: 20091203
  Receipt Date: 20091124
  Transmission Date: 20100525
  Serious: Yes (Other)
  Sender: FDA-Public Use
  Company Number: US-PFIZER INC-2009303944

PATIENT
  Sex: Female
  Weight: 84.807 kg

DRUGS (2)
  1. LYRICA [Suspect]
     Indication: NEUROPATHY PERIPHERAL
     Dosage: FREQUENCY: 3X/DAY,
     Dates: start: 20090801
  2. OXYCODONE HCL [Concomitant]
     Dosage: UNK

REACTIONS (3)
  - DYSPEPSIA [None]
  - GASTRIC HAEMORRHAGE [None]
  - HAEMOPTYSIS [None]
